FAERS Safety Report 19688562 (Version 1)
Quarter: 2021Q3

REPORT INFORMATION
  Report Type: Spontaneous
  Country: US (occurrence: US)
  Receive Date: 20210811
  Receipt Date: 20210811
  Transmission Date: 20211014
  Serious: No
  Sender: FDA-Public Use
  Company Number: US-SA-2021SA261555

PATIENT
  Age: 42 Year
  Sex: Female

DRUGS (3)
  1. DUPIXENT [Suspect]
     Active Substance: DUPILUMAB
     Indication: DERMATITIS ATOPIC
     Dosage: 300 MG, EVERY OTHER WEEK
     Route: 058
     Dates: start: 20201124
  2. AMITRIPTYLIN [Concomitant]
     Active Substance: AMITRIPTYLINE
  3. SINGULAIR [Concomitant]
     Active Substance: MONTELUKAST SODIUM

REACTIONS (4)
  - Sleep disorder [Recovered/Resolved]
  - Discomfort [Recovered/Resolved]
  - Dermatitis atopic [Recovered/Resolved]
  - Rash [Recovered/Resolved]
